FAERS Safety Report 16533967 (Version 5)
Quarter: 2021Q2

REPORT INFORMATION
  Report Type: Report from Study
  Country: None (occurrence: DE)
  Receive Date: 20190704
  Receipt Date: 20210525
  Transmission Date: 20210716
  Serious: Yes (Death, Hospitalization, Other)
  Sender: FDA-Public Use
  Company Number: DE-ABBVIE-19K-062-2843492-00

PATIENT
  Age: 73 Year
  Sex: Male
  Weight: 74 kg

DRUGS (5)
  1. VENETOCLAX. [Suspect]
     Active Substance: VENETOCLAX
     Route: 048
     Dates: start: 20190212, end: 20190418
  2. VENETOCLAX. [Suspect]
     Active Substance: VENETOCLAX
     Route: 048
     Dates: start: 20190122, end: 20190128
  3. VENETOCLAX. [Suspect]
     Active Substance: VENETOCLAX
     Route: 048
     Dates: start: 20190205, end: 20190211
  4. VENETOCLAX. [Suspect]
     Active Substance: VENETOCLAX
     Route: 048
     Dates: start: 20190129, end: 20190204
  5. VENETOCLAX. [Suspect]
     Active Substance: VENETOCLAX
     Indication: CHRONIC LYMPHOCYTIC LEUKAEMIA
     Route: 048
     Dates: start: 20190115, end: 20190121

REACTIONS (8)
  - Localised infection [Recovered/Resolved]
  - Fatigue [Fatal]
  - General symptom [Recovered/Resolved]
  - Depression [Fatal]
  - Pain [Fatal]
  - Fistula [Recovered/Resolved]
  - Pneumonia [Fatal]
  - Nasal neoplasm [Unknown]

NARRATIVE: CASE EVENT DATE: 2019
